FAERS Safety Report 6980190 (Version 2)
Quarter: 2020Q2

REPORT INFORMATION
  Report Type: Spontaneous
  Country: QA (occurrence: QA)
  Receive Date: 20090420
  Receipt Date: 20200413
  Transmission Date: 20200714
  Serious: Yes (Hospitalization)
  Sender: FDA-Public Use
  Company Number: GXKR2009QA04477

PATIENT
  Age: 20 Year
  Sex: Male

DRUGS (1)
  1. DICLOFENAC [Suspect]
     Active Substance: DICLOFENAC
     Indication: PAIN IN EXTREMITY
     Dosage: UNK
     Route: 030

REACTIONS (1)
  - Embolia cutis medicamentosa [Recovered/Resolved]
